FAERS Safety Report 11935006 (Version 1)
Quarter: 2016Q1

REPORT INFORMATION
  Report Type: Spontaneous
  Country: US (occurrence: None)
  Receive Date: 20160120
  Receipt Date: 20160120
  Transmission Date: 20160526
  Serious: Yes (Disabling)
  Sender: FDA-Public Use
  Company Number: None

PATIENT
  Age: 79 Year
  Sex: Male
  Weight: 106.6 kg

DRUGS (10)
  1. OMEPRAZOLE. [Concomitant]
     Active Substance: OMEPRAZOLE
  2. TRAZODONE [Concomitant]
     Active Substance: TRAZODONE HYDROCHLORIDE
  3. VITAMIN B6 [Concomitant]
     Active Substance: PYRIDOXINE HYDROCHLORIDE
  4. TAMSULOSIN [Concomitant]
     Active Substance: TAMSULOSIN
  5. VITAMIN D [Concomitant]
     Active Substance: CHOLECALCIFEROL
  6. ASPIRIN. [Concomitant]
     Active Substance: ASPIRIN
  7. LEVOTHYROXINE. [Concomitant]
     Active Substance: LEVOTHYROXINE
  8. TYLENOL PM [Concomitant]
     Active Substance: ACETAMINOPHEN\DIPHENHYDRAMINE
  9. TYLENOL [Concomitant]
     Active Substance: ACETAMINOPHEN
  10. LEVOFLOXACIN 500 MG ZYDUS [Suspect]
     Active Substance: LEVOFLOXACIN
     Indication: BRONCHITIS
     Dosage: 7  ONCE DAILY TAKEN BY MOUTH
     Route: 048
     Dates: start: 20151230, end: 20160105

REACTIONS (4)
  - Joint stiffness [None]
  - Arthralgia [None]
  - Hypoaesthesia [None]
  - Tendon discomfort [None]

NARRATIVE: CASE EVENT DATE: 20151230
